FAERS Safety Report 9424365 (Version 1)
Quarter: 2013Q3

REPORT INFORMATION
  Report Type: Spontaneous
  Country: US (occurrence: US)
  Receive Date: 20130729
  Receipt Date: 20130729
  Transmission Date: 20140515
  Serious: Yes (Hospitalization)
  Sender: FDA-Public Use
  Company Number: US-VIROPHARMA INCORPORATED-20130719CINRY4653

PATIENT
  Age: 40 Year
  Sex: Male

DRUGS (3)
  1. CINRYZE (C1 ESTERASE INHIBITOR (HUMAN)) [Suspect]
     Indication: HEREDITARY ANGIOEDEMA
  2. CINRYZE (C1 ESTERASE INHIBITOR (HUMAN)) [Suspect]
     Indication: PROPHYLAXIS
  3. BENADRYL [Concomitant]
     Indication: HYPERSENSITIVITY
     Dosage: UNKNOWN
     Route: 065

REACTIONS (5)
  - Thrombosis [Recovered/Resolved]
  - Hereditary angioedema [Unknown]
  - Inappropriate schedule of drug administration [Not Recovered/Not Resolved]
  - Therapy change [Not Recovered/Not Resolved]
  - Hypersensitivity [Unknown]
